FAERS Safety Report 15699659 (Version 1)
Quarter: 2018Q4

REPORT INFORMATION
  Report Type: Spontaneous
  Country: US (occurrence: US)
  Receive Date: 20181207
  Receipt Date: 20181207
  Transmission Date: 20190205
  Serious: Yes (Hospitalization)
  Sender: FDA-Public Use
  Company Number: None

PATIENT
  Sex: Female

DRUGS (20)
  1. FAMOTIDINE. [Concomitant]
     Active Substance: FAMOTIDINE
  2. VITAMIN B1 [Concomitant]
     Active Substance: THIAMINE HYDROCHLORIDE
  3. PREDNISONE. [Concomitant]
     Active Substance: PREDNISONE
  4. ZORTRESS [Suspect]
     Active Substance: EVEROLIMUS
     Indication: LUNG TRANSPLANT
     Route: 048
     Dates: start: 20170930
  5. PROLIA [Concomitant]
     Active Substance: DENOSUMAB
  6. TACROLIMUS. [Concomitant]
     Active Substance: TACROLIMUS
  7. MUCINEX [Concomitant]
     Active Substance: GUAIFENESIN
  8. MULTIVITAMIN [Concomitant]
     Active Substance: VITAMINS
  9. PANTOPRAZOLE [Concomitant]
     Active Substance: PANTOPRAZOLE
  10. SMZ-TMP [Concomitant]
     Active Substance: SULFAMETHOXAZOLE\TRIMETHOPRIM
  11. ELIQUIS [Concomitant]
     Active Substance: APIXABAN
  12. METFORMIN [Concomitant]
     Active Substance: METFORMIN HYDROCHLORIDE
  13. ONDANSETRON [Concomitant]
     Active Substance: ONDANSETRON
  14. ACYCLOVIR. [Concomitant]
     Active Substance: ACYCLOVIR
  15. ARANESP [Concomitant]
     Active Substance: DARBEPOETIN ALFA
  16. MAGNESIUM [Concomitant]
     Active Substance: MAGNESIUM
  17. ZOLORFT [Concomitant]
  18. FERROUS [Concomitant]
     Active Substance: IRON
  19. MIRTAZAPINE. [Concomitant]
     Active Substance: MIRTAZAPINE
  20. REGLAN [Concomitant]
     Active Substance: METOCLOPRAMIDE HYDROCHLORIDE

REACTIONS (1)
  - Pneumonia [None]
